FAERS Safety Report 10307989 (Version 2)
Quarter: 2014Q4

REPORT INFORMATION
  Report Type: Spontaneous
  Country: US (occurrence: US)
  Receive Date: 20140716
  Receipt Date: 20141001
  Transmission Date: 20150528
  Serious: Yes (Death, Life-Threatening, Hospitalization)
  Sender: FDA-Public Use
  Company Number: US-BEH-2014043785

PATIENT
  Sex: Male

DRUGS (2)
  1. ZEMAIRA [Suspect]
     Active Substance: .ALPHA.1-PROTEINASE INHIBITOR HUMAN
     Indication: ALPHA-1 ANTI-TRYPSIN DEFICIENCY
     Dosage: 973 MG VIAL;60 MG/KG
     Route: 042
     Dates: start: 20140110, end: 20140604
  2. ZEMAIRA [Suspect]
     Active Substance: .ALPHA.1-PROTEINASE INHIBITOR HUMAN
     Indication: BRONCHITIS CHRONIC
     Dosage: 973 MG VIAL;60 MG/KG
     Route: 042
     Dates: start: 20140110, end: 20140604

REACTIONS (2)
  - Hospice care [Fatal]
  - Emphysema [Fatal]
